FAERS Safety Report 7372807 (Version 2)
Quarter: 2013Q3

REPORT INFORMATION
  Report Type: Spontaneous
  Country: US (occurrence: US)
  Receive Date: 20100430
  Receipt Date: 20130718
  Transmission Date: 20140515
  Serious: No
  Sender: FDA-Public Use
  Company Number: US-ASTRAZENECA-2010SE09456

PATIENT
  Age: 60 Year
  Sex: Male
  Weight: 74.8 kg

DRUGS (8)
  1. NEXIUM [Suspect]
     Indication: GASTROOESOPHAGEAL REFLUX DISEASE
     Route: 048
  2. PLAVIX [Suspect]
     Route: 065
  3. METOPROLOL [Concomitant]
  4. RENEGEL [Concomitant]
  5. AMLODIPINE [Concomitant]
  6. DIOVAN [Concomitant]
  7. ZOCOR [Concomitant]
  8. NEPHRO-VITE [Concomitant]

REACTIONS (2)
  - Gastrooesophageal reflux disease [Unknown]
  - Drug dose omission [Unknown]
